FAERS Safety Report 4496672-6 (Version None)
Quarter: 2004Q4

REPORT INFORMATION
  Report Type: 
  Country: None (occurrence: None)
  Receive Date: 20041108
  Receipt Date: 20041108
  Transmission Date: 20050328
  Serious: Yes (Hospitalization)
  Sender: FDA-Public Use
  Company Number: None

PATIENT
  Age: 78 Year
  Sex: Male
  Weight: 68.4932 kg

DRUGS (8)
  1. IRESSA [Suspect]
     Indication: LUNG NEOPLASM MALIGNANT
     Dosage: 250MG   DAILY  ORAL
     Route: 048
     Dates: start: 20040728, end: 20041031
  2. DIGOXIN [Concomitant]
  3. COUMADIN [Concomitant]
  4. TESSALON [Concomitant]
  5. PROSCAR [Concomitant]
  6. LESCOL [Concomitant]
  7. ALLOPURINOL [Concomitant]
  8. VASOTEC [Concomitant]

REACTIONS (1)
  - DYSPNOEA [None]
